FAERS Safety Report 12645444 (Version 1)
Quarter: 2016Q3

REPORT INFORMATION
  Report Type: Report from Study
  Country: US (occurrence: US)
  Receive Date: 20160811
  Receipt Date: 20160811
  Transmission Date: 20161109
  Serious: Yes (Hospitalization)
  Sender: FDA-Public Use
  Company Number: US-EISAI MEDICAL RESEARCH-EC-2016-019090

PATIENT
  Age: 82 Year
  Sex: Female
  Weight: 56 kg

DRUGS (12)
  1. SYNTHROID [Concomitant]
     Active Substance: LEVOTHYROXINE SODIUM
  2. LENVIMA [Suspect]
     Active Substance: LENVATINIB
     Indication: THYROID CANCER
     Route: 048
     Dates: start: 20160720, end: 201608
  3. LOSARTAN. [Concomitant]
     Active Substance: LOSARTAN
  4. ESTROGEN/METHYLTESTOSTERONE [Concomitant]
  5. CALCIUM [Concomitant]
     Active Substance: CALCIUM
  6. ZOFRAN [Concomitant]
     Active Substance: ONDANSETRON HYDROCHLORIDE
  7. VITAMIN D2 [Concomitant]
     Active Substance: ERGOCALCIFEROL
  8. OXYBUTNIN [Concomitant]
  9. EXCEDRIN [Concomitant]
     Active Substance: ACETAMINOPHEN\ASPIRIN\CAFFEINE
  10. SIMVASTIN [Concomitant]
     Active Substance: SIMVASTATIN
  11. IBUPROFEN. [Concomitant]
     Active Substance: IBUPROFEN
  12. MULTIVITAMINS [Concomitant]
     Active Substance: VITAMINS

REACTIONS (5)
  - Oral pain [Unknown]
  - Headache [Unknown]
  - Blood pressure increased [Unknown]
  - Urinary tract infection [Unknown]
  - Confusional state [Unknown]

NARRATIVE: CASE EVENT DATE: 2016
